FAERS Safety Report 13598383 (Version 4)
Quarter: 2017Q3

REPORT INFORMATION
  Report Type: Spontaneous
  Country: US (occurrence: US)
  Receive Date: 20170531
  Receipt Date: 20170725
  Transmission Date: 20171127
  Serious: Yes (Other)
  Sender: FDA-Public Use
  Company Number: US-BAYER-2017-100622

PATIENT
  Age: 17 Year
  Sex: Female
  Weight: 64.5 kg

DRUGS (1)
  1. MIRENA [Suspect]
     Active Substance: LEVONORGESTREL
     Indication: CONTRACEPTION
     Dosage: 20 MCG/24HR, CONT
     Route: 015
     Dates: start: 20170331, end: 2017

REACTIONS (3)
  - Device dislocation [None]
  - Device physical property issue [None]
  - Genital haemorrhage [None]

NARRATIVE: CASE EVENT DATE: 2017
